FAERS Safety Report 14572555 (Version 1)
Quarter: 2018Q1

REPORT INFORMATION
  Report Type: Spontaneous
  Country: US (occurrence: US)
  Receive Date: 20180226
  Receipt Date: 20180226
  Transmission Date: 20180509
  Serious: No
  Sender: FDA-Public Use
  Company Number: US-009507513-1802USA010015

PATIENT
  Age: 64 Year
  Sex: Female

DRUGS (2)
  1. PRINIVIL [Suspect]
     Active Substance: LISINOPRIL
     Dosage: 2.5 MG/ ONCE DAILY IN THE MORNING
     Route: 048
     Dates: start: 201802, end: 20180218
  2. PRINIVIL [Suspect]
     Active Substance: LISINOPRIL
     Indication: HYPERTENSION
     Dosage: 2.5 MG/ ONCE DAILY IN THE MORNING
     Route: 048
     Dates: start: 20171219, end: 201801

REACTIONS (19)
  - Skin exfoliation [Recovering/Resolving]
  - Pain in extremity [Recovering/Resolving]
  - Psoriasis [Recovering/Resolving]
  - Pruritus [Recovering/Resolving]
  - Poor quality sleep [Unknown]
  - Tinea pedis [Recovering/Resolving]
  - Cough [Not Recovered/Not Resolved]
  - Erythema [Unknown]
  - Rash vesicular [Recovering/Resolving]
  - Dermatitis contact [Recovering/Resolving]
  - Feeling abnormal [Unknown]
  - Blister [Recovering/Resolving]
  - Influenza like illness [Recovered/Resolved]
  - Dysphonia [Not Recovered/Not Resolved]
  - Gait disturbance [Recovering/Resolving]
  - Myalgia [Unknown]
  - Skin fissures [Recovering/Resolving]
  - Musculoskeletal chest pain [Not Recovered/Not Resolved]
  - Malaise [Unknown]

NARRATIVE: CASE EVENT DATE: 201712
